FAERS Safety Report 18307185 (Version 1)
Quarter: 2020Q3

REPORT INFORMATION
  Report Type: Spontaneous
  Country: US (occurrence: US)
  Receive Date: 20200923
  Receipt Date: 20200923
  Transmission Date: 20201103
  Serious: No
  Sender: FDA-Public Use
  Company Number: None

PATIENT
  Age: 61 Year
  Sex: Male
  Weight: 58 kg

DRUGS (2)
  1. CITALOPRAM (CITALOPRAM HYDROBROMIDE 10MG TAB) [Suspect]
     Active Substance: CITALOPRAM HYDROBROMIDE
     Indication: POST-TRAUMATIC STRESS DISORDER
     Route: 048
     Dates: start: 20160509, end: 20200124
  2. MIRTAZAPINE (MIRTAZAPINE 15MG TAB) [Suspect]
     Active Substance: MIRTAZAPINE
     Indication: POST-TRAUMATIC STRESS DISORDER
     Route: 048
     Dates: start: 20160509, end: 20200205

REACTIONS (9)
  - Fall [None]
  - Hallucination [None]
  - Depression [None]
  - Paranoia [None]
  - Pain [None]
  - Inappropriate antidiuretic hormone secretion [None]
  - Social avoidant behaviour [None]
  - Urinary tract infection [None]
  - Treatment noncompliance [None]

NARRATIVE: CASE EVENT DATE: 20200129
